FAERS Safety Report 6811763-X (Version None)
Quarter: 2010Q2

REPORT INFORMATION
  Report Type: 
  Country: None (occurrence: None)
  Receive Date: 20100628
  Receipt Date: 20100614
  Transmission Date: 20101027
  Serious: Yes (Other)
  Sender: FDA-Public Use
  Company Number: JHP201000175

PATIENT
  Age: 68 Year
  Sex: Female
  Weight: 35 kg

DRUGS (9)
  1. DANTRIUM [Suspect]
     Indication: NEUROLEPTIC MALIGNANT SYNDROME
     Dosage: 25 MG, TID, ORAL; 25 MG, BID, ORAL; 25 MG, QD
     Route: 048
     Dates: start: 20050324, end: 20060903
  2. DANTRIUM [Suspect]
     Indication: NEUROLEPTIC MALIGNANT SYNDROME
     Dosage: 25 MG, TID, ORAL; 25 MG, BID, ORAL; 25 MG, QD
     Route: 048
     Dates: start: 20060904, end: 20080406
  3. DANTRIUM [Suspect]
     Indication: NEUROLEPTIC MALIGNANT SYNDROME
     Dosage: 25 MG, TID, ORAL; 25 MG, BID, ORAL; 25 MG, QD
     Route: 048
     Dates: start: 20080407, end: 20100418
  4. DEPAS (ETIZOLAM) [Suspect]
     Indication: DEPRESSION
     Dosage: 0.5 MG, QD, ORAL
     Route: 048
     Dates: start: 20080407, end: 20100419
  5. DEPAS (ETIZOLAM) [Suspect]
     Indication: INSOMNIA
     Dosage: 0.5 MG, QD, ORAL
     Route: 048
     Dates: start: 20080407, end: 20100419
  6. ZANTAC (RANITIDINE HYDROCHLORIDE) TABLET [Concomitant]
  7. EBRANTIL (URAPIDIL) TABLET [Concomitant]
  8. MEDITRANS (GLYCERYL TRINITRATE) (GLYCERYL TRINITRATE) TAPE (INCLUDING [Concomitant]
  9. GASLON (IRSOGLADINE MALEATE) [Concomitant]

REACTIONS (8)
  - DELIRIUM [None]
  - EPILEPSY [None]
  - MOANING [None]
  - MUSCULAR WEAKNESS [None]
  - RESPIRATION ABNORMAL [None]
  - RESPIRATORY DEPRESSION [None]
  - SLEEP TERROR [None]
  - URINARY TRACT INFECTION [None]
